FAERS Safety Report 6190091-2 (Version None)
Quarter: 2009Q2

REPORT INFORMATION
  Report Type: 
  Country: None (occurrence: None)
  Receive Date: 20090514
  Receipt Date: 20090507
  Transmission Date: 20091009
  Serious: Yes (Hospitalization, Other)
  Sender: FDA-Public Use
  Company Number: PHHY2009JP15388

PATIENT
  Sex: Male

DRUGS (3)
  1. DIOVAN HCT [Suspect]
     Indication: HYPERTENSION
     Dosage: 1 DF, QD
     Route: 048
     Dates: start: 20090318
  2. ARTIST [Concomitant]
     Indication: TACHYCARDIA
     Dosage: 2.5 MG
     Route: 048
     Dates: start: 20071009
  3. EPADEL [Concomitant]
     Indication: CAROTID ARTERIOSCLEROSIS
     Dosage: 900 MG
     Route: 048
     Dates: start: 20090219

REACTIONS (6)
  - DIZZINESS [None]
  - FALL [None]
  - HYPONATRAEMIA [None]
  - VOMITING [None]
  - WOUND [None]
  - WOUND HAEMORRHAGE [None]
